FAERS Safety Report 13444969 (Version 7)
Quarter: 2017Q3

REPORT INFORMATION
  Report Type: Report from Study
  Country: CO (occurrence: CO)
  Receive Date: 20170414
  Receipt Date: 20170811
  Transmission Date: 20171127
  Serious: Yes (Hospitalization, Other)
  Sender: FDA-Public Use
  Company Number: PHHY2017CO055128

PATIENT
  Age: 36 Year
  Sex: Male
  Weight: 105 kg

DRUGS (4)
  1. SANDOSTATIN LAR DEPOT [Suspect]
     Active Substance: OCTREOTIDE ACETATE
     Indication: ACROMEGALY
     Dosage: 20 MG, QMO
     Route: 030
     Dates: start: 20161022, end: 20170708
  2. PREDNISOLONE. [Concomitant]
     Active Substance: PREDNISOLONE
     Indication: PRODUCT USED FOR UNKNOWN INDICATION
     Route: 065
  3. TESTOSTERONE. [Concomitant]
     Active Substance: TESTOSTERONE
     Indication: PRODUCT USED FOR UNKNOWN INDICATION
     Dosage: UNK (EVERY 15 DAYS)
     Route: 065
  4. LEVOTHYROXINE. [Concomitant]
     Active Substance: LEVOTHYROXINE
     Indication: PRODUCT USED FOR UNKNOWN INDICATION
     Dosage: 75 MG, UNK
     Route: 065

REACTIONS (18)
  - Blood potassium decreased [Unknown]
  - Seizure [Unknown]
  - Phlebitis [Unknown]
  - Loss of consciousness [Not Recovered/Not Resolved]
  - Muscle spasms [Not Recovered/Not Resolved]
  - Speech disorder [Not Recovered/Not Resolved]
  - Fatigue [Unknown]
  - Paralysis [Unknown]
  - Gait inability [Unknown]
  - Pleural effusion [Recovered/Resolved]
  - Diarrhoea [Unknown]
  - Brain neoplasm [Unknown]
  - Gastric disorder [Unknown]
  - Eating disorder [Unknown]
  - Fall [Not Recovered/Not Resolved]
  - Syncope [Unknown]
  - Central nervous system lesion [Unknown]
  - Asthenia [Unknown]

NARRATIVE: CASE EVENT DATE: 20170622
